FAERS Safety Report 25381854 (Version 1)
Quarter: 2025Q2

REPORT INFORMATION
  Report Type: Spontaneous
  Country: NL (occurrence: NL)
  Receive Date: 20250531
  Receipt Date: 20250531
  Transmission Date: 20250717
  Serious: Yes (Other)
  Sender: AUROBINDO
  Company Number: NL-LRB-01057221

PATIENT
  Age: 75 Year
  Sex: Male
  Weight: 87 kg

DRUGS (1)
  1. DULOXETINE [Suspect]
     Active Substance: DULOXETINE
     Indication: Depressive symptom
     Dosage: 30 MILLIGRAM, ONCE A DAY (1DD 30MG)
     Route: 048
     Dates: start: 20250409, end: 20250414

REACTIONS (1)
  - Large intestinal haemorrhage [Recovered/Resolved]
